FAERS Safety Report 10395825 (Version 1)
Quarter: 2014Q3

REPORT INFORMATION
  Report Type: Report from Study
  Country: US (occurrence: US)
  Receive Date: 20140820
  Receipt Date: 20140820
  Transmission Date: 20150326
  Serious: Yes (Other)
  Sender: FDA-Public Use
  Company Number: US-SA-2014SA110619

PATIENT
  Age: 62 Year

DRUGS (7)
  1. FLUDARABINE PHOSPHATE. [Suspect]
     Active Substance: FLUDARABINE PHOSPHATE
     Indication: BONE MARROW CONDITIONING REGIMEN
     Dosage: GIVEN OVER 60 MINUTES DAILY
     Route: 065
  2. PHENYTOIN. [Suspect]
     Active Substance: PHENYTOIN
     Indication: SUPPORTIVE CARE
     Dosage: USED DURING AND 1 DAY AFTER I.V. BUSULFAN,STARTING EVENING BEFORE OR IN MORNING OF THE FIRST DOSE
     Route: 048
  3. METHOTREXATE [Suspect]
     Active Substance: METHOTREXATE
     Indication: PROPHYLAXIS AGAINST GRAFT VERSUS HOST DISEASE
     Dosage: ON DAYS 1, 3, 6 AND 11 FOLLOWING TRANSPLANTATION
     Route: 065
  4. TACROLIMUS. [Suspect]
     Active Substance: TACROLIMUS
     Indication: PROPHYLAXIS AGAINST GRAFT VERSUS HOST DISEASE
     Dosage: ADJUSTED TO MAINTAIN WHOLE BLOOD TROUGH LEVELS OF 5 TO 15 NG/ML
     Route: 065
  5. ACETAMINOPHEN. [Concomitant]
     Active Substance: ACETAMINOPHEN
  6. BUSULFAN [Suspect]
     Active Substance: BUSULFAN
     Indication: BONE MARROW CONDITIONING REGIMEN
     Dosage: OVER 3 HOURS DAILY (DAYS -6 TO -3)
     Route: 042
  7. FILGRASTIM [Suspect]
     Active Substance: FILGRASTIM
     Indication: SUPPORTIVE CARE
     Dosage: FROM DAY +7 UNTIL ACHIEVING AN ANC EQUAL TO OR MORE THAN 1.5X10E9/L
     Route: 058

REACTIONS (1)
  - Venoocclusive disease [Unknown]
